FAERS Safety Report 6835611-7 (Version None)
Quarter: 2010Q3

REPORT INFORMATION
  Report Type: 
  Country: None (occurrence: None)
  Receive Date: 20100713
  Receipt Date: 20100702
  Transmission Date: 20110219
  Serious: Yes (Other)
  Sender: FDA-Public Use
  Company Number: NO-JNJFOC-20100701487

PATIENT
  Age: 68 Year
  Sex: Female

DRUGS (8)
  1. REMICADE [Suspect]
     Indication: RHEUMATOID ARTHRITIS
     Route: 042
  2. LODOZ [Concomitant]
  3. NEXIUM [Concomitant]
  4. CALCIUM [Concomitant]
  5. COLOSTRUM [Concomitant]
  6. APODORM [Concomitant]
  7. NAPROXEN [Concomitant]
  8. ASTHMA MEDICATION [Concomitant]

REACTIONS (5)
  - BLINDNESS [None]
  - DIZZINESS [None]
  - INFUSION RELATED REACTION [None]
  - MALAISE [None]
  - VITREOUS HAEMORRHAGE [None]
